FAERS Safety Report 9484609 (Version 2)
Quarter: 2013Q3

REPORT INFORMATION
  Report Type: Spontaneous
  Country: CA (occurrence: CA)
  Receive Date: 20130828
  Receipt Date: 20130828
  Transmission Date: 20140515
  Serious: Yes (Other)
  Sender: FDA-Public Use
  Company Number: CA-AMGEN-KDL418698

PATIENT
  Age: 76 Year
  Sex: Female

DRUGS (12)
  1. ENBREL [Suspect]
     Indication: RHEUMATOID ARTHRITIS
     Dosage: UNK UNK, QWK
     Route: 065
     Dates: start: 20100610
  2. ENBREL [Suspect]
     Dosage: UNK UNK, QWK
     Route: 065
     Dates: start: 20100610
  3. ATENOLOL [Concomitant]
  4. LEVOTHYROXINE SODIUM [Concomitant]
  5. OMEPRAZOLE [Concomitant]
  6. ACETYLSALICYLIC ACID [Concomitant]
  7. LORAZEPAM [Concomitant]
  8. ETIDRONATE DISODIUM [Concomitant]
  9. PRAMINPEXOLE DIHYDROCHLORIDE [Concomitant]
  10. ZOPICLONE [Concomitant]
  11. RANITIDINE HYDROCHLORIDE [Concomitant]
  12. ISOSORBIDE MONONITRATE [Concomitant]

REACTIONS (8)
  - Swelling face [Recovered/Resolved]
  - Local swelling [Recovered/Resolved]
  - Malaise [Unknown]
  - Rheumatoid arthritis [Not Recovered/Not Resolved]
  - Abdominal pain [Not Recovered/Not Resolved]
  - Injection site erythema [Recovered/Resolved]
  - Injection site swelling [Recovered/Resolved]
  - Injection site pruritus [Recovered/Resolved]
